FAERS Safety Report 10511499 (Version 3)
Quarter: 2015Q2

REPORT INFORMATION
  Report Type: Spontaneous
  Country: US (occurrence: US)
  Receive Date: 20141010
  Receipt Date: 20150427
  Transmission Date: 20150821
  Serious: Yes (Hospitalization, Other)
  Sender: FDA-Public Use
  Company Number: US-BAYER-2014-149402

PATIENT
  Age: 20 Year
  Sex: Female
  Weight: 52.15 kg

DRUGS (3)
  1. PRENATAL VITAMINS [Concomitant]
     Active Substance: VITAMINS
     Dosage: UNK
     Dates: start: 20121010
  2. MIRENA [Suspect]
     Active Substance: LEVONORGESTREL
     Indication: CONTRACEPTION
     Dosage: 20 MCG/24HR, CONT
     Route: 015
     Dates: start: 20120912, end: 20121012
  3. LORTAB [Concomitant]
     Active Substance: ACETAMINOPHEN\HYDROCODONE BITARTRATE
     Dosage: UNK
     Dates: start: 20120714

REACTIONS (14)
  - Discomfort [None]
  - Emotional distress [None]
  - Genital haemorrhage [None]
  - Abdominal pain [None]
  - Internal injury [None]
  - Device dislocation [None]
  - Depression [None]
  - Anxiety [None]
  - Depressed mood [None]
  - Fear [None]
  - Uterine perforation [None]
  - Pelvic pain [None]
  - Injury [None]
  - Device issue [None]

NARRATIVE: CASE EVENT DATE: 20120926
